FAERS Safety Report 11397571 (Version 1)
Quarter: 2015Q3

REPORT INFORMATION
  Report Type: Spontaneous
  Country: US (occurrence: US)
  Receive Date: 20150819
  Receipt Date: 20150819
  Transmission Date: 20151125
  Serious: Yes (Other)
  Sender: FDA-Public Use
  Company Number: PHEH2015US015744

PATIENT
  Sex: Female

DRUGS (1)
  1. RECLAST [Suspect]
     Active Substance: ZOLEDRONIC ACID
     Indication: PRODUCT USED FOR UNKNOWN INDICATION
     Route: 065

REACTIONS (7)
  - Immune system disorder [Unknown]
  - Headache [Unknown]
  - Eye inflammation [Unknown]
  - Arthralgia [Unknown]
  - Visual impairment [Unknown]
  - Eye infection [Unknown]
  - Bone pain [Unknown]
